FAERS Safety Report 6837653-4 (Version None)
Quarter: 2010Q3

REPORT INFORMATION
  Report Type: 
  Country: None (occurrence: None)
  Receive Date: 20100713
  Receipt Date: 20070518
  Transmission Date: 20110219
  Serious: No
  Sender: FDA-Public Use
  Company Number: US-PFIZER INC-2007040958

PATIENT
  Sex: Female
  Weight: 56.818 kg

DRUGS (4)
  1. CHANTIX [Suspect]
     Indication: SMOKING CESSATION THERAPY
     Dates: start: 20070101
  2. PLAVIX [Concomitant]
  3. KLONOPIN [Concomitant]
  4. SIMVASTATIN [Concomitant]

REACTIONS (3)
  - CONSTIPATION [None]
  - MALAISE [None]
  - NAUSEA [None]
